FAERS Safety Report 8055976-0 (Version None)
Quarter: 2012Q1

REPORT INFORMATION
  Report Type: 
  Country: None (occurrence: None)
  Receive Date: 20120119
  Receipt Date: 20120112
  Transmission Date: 20120608
  Serious: Yes (Hospitalization)
  Sender: FDA-Public Use
  Company Number: CZ-ROCHE-1030024

PATIENT
  Sex: Male
  Weight: 75 kg

DRUGS (1)
  1. AVASTIN [Suspect]
     Indication: METASTATIC RENAL CELL CARCINOMA
     Route: 042
     Dates: start: 20100512, end: 20111207

REACTIONS (1)
  - PLEURAL EFFUSION [None]
